FAERS Safety Report 6189768-4 (Version None)
Quarter: 2009Q2

REPORT INFORMATION
  Report Type: 
  Country: None (occurrence: None)
  Receive Date: 20090514
  Receipt Date: 20090505
  Transmission Date: 20091009
  Serious: Yes (Disabling)
  Sender: FDA-Public Use
  Company Number: BR-JNJFOC-20090306787

PATIENT
  Sex: Male
  Weight: 72 kg

DRUGS (12)
  1. TMC125 [Suspect]
     Route: 048
  2. TMC125 [Suspect]
     Indication: HIV INFECTION
     Route: 048
  3. TMC114 [Suspect]
     Route: 048
  4. TMC114 [Suspect]
     Indication: HIV INFECTION
     Route: 048
  5. RITONAVIR [Suspect]
     Indication: HIV INFECTION
     Route: 048
  6. TENOFOVIR [Suspect]
     Indication: HIV INFECTION
     Route: 048
  7. COMBIVIR [Suspect]
     Indication: HIV INFECTION
     Route: 048
  8. FLUTICASONE PROPIONATE [Suspect]
     Indication: ASTHMA
  9. VALACYCLOVIR [Concomitant]
     Indication: GENITAL HERPES
  10. HYDROCHLOROTHIAZIDE [Concomitant]
     Indication: HYPERTENSION
  11. SALMETEROL [Concomitant]
     Indication: ASTHMA
  12. TIOTROPIUM BROMIDE [Concomitant]
     Indication: ASTHMA

REACTIONS (1)
  - OSTEONECROSIS [None]
